FAERS Safety Report 19118066 (Version 3)
Quarter: 2021Q3

REPORT INFORMATION
  Report Type: Spontaneous
  Country: GR (occurrence: GR)
  Receive Date: 20210409
  Receipt Date: 20210809
  Transmission Date: 20211014
  Serious: Yes (Other)
  Sender: FDA-Public Use
  Company Number: GR-MYLANLABS-2021M1021513

PATIENT
  Age: 28 Year
  Sex: Male

DRUGS (13)
  1. TEMOZOLOMIDE. [Suspect]
     Active Substance: TEMOZOLOMIDE
     Indication: GLIOBLASTOMA MULTIFORME
     Dosage: 100 MILLIGRAM/SQ. METER, CYCLE
     Route: 048
     Dates: start: 201909
  2. GLUCOSE [Concomitant]
     Active Substance: DEXTROSE
     Dosage: UNK
     Route: 042
     Dates: start: 201909
  3. DEXTROSE. [Concomitant]
     Active Substance: DEXTROSE
     Dosage: UNK
     Route: 042
     Dates: start: 201909
  4. DEXAMETHASONE. [Suspect]
     Active Substance: DEXAMETHASONE
     Indication: SEIZURE
     Dosage: 6 MILLIGRAM, BID
     Route: 048
     Dates: start: 2019, end: 2020
  5. BEVACIZUMAB MYLAN [Suspect]
     Active Substance: BEVACIZUMAB
     Indication: GLIOBLASTOMA MULTIFORME
     Dosage: 15 MILLIGRAM/KILOGRAM, CYCLE (15 MG/KG ON DAY 1, CYCLICAL )
     Dates: start: 201909
  6. VINCRISTINE [Suspect]
     Active Substance: VINCRISTINE
     Indication: GLIOBLASTOMA MULTIFORME
     Dosage: 2 MILLIGRAM, QD (2 MG ON DAY 1, CYCLICAL)
     Route: 042
     Dates: start: 201909
  7. APREPITANT. [Concomitant]
     Active Substance: APREPITANT
     Indication: PROPHYLAXIS OF NAUSEA AND VOMITING
     Dosage: 125 MG O.D. ON DAY 1 FOLLOWED BY 80 MG O.D. ON DAYS 2?5, CYCLICAL
     Dates: start: 201909
  8. PALONOSETRON HYDROCHLORIDE. [Concomitant]
     Active Substance: PALONOSETRON HYDROCHLORIDE
     Indication: PROPHYLAXIS OF NAUSEA AND VOMITING
     Dosage: 0.25 MILLIGRAM, CYCLE, 0.25 MG (DAYS 1, 3, AND 5), CYCLICAL
     Route: 048
     Dates: start: 201909
  9. LOPERAMIDE [Concomitant]
     Active Substance: LOPERAMIDE
     Indication: PROPHYLAXIS AGAINST DIARRHOEA
     Dosage: UNK
     Dates: start: 201909
  10. DIMETINDENE MALEATE [Concomitant]
     Active Substance: DIMETHINDENE MALEATE
     Dosage: 2 MILLIGRAM, CYCLICAL
     Route: 042
     Dates: start: 201909
  11. IRINOTECAN [Suspect]
     Active Substance: IRINOTECAN
     Indication: GLIOBLASTOMA MULTIFORME
     Dosage: INITIALLY 30 MG/M2(WITH PLAN DOSE ESCALATION UPTO 50 MG/M2 IN ABSENCE OF SIGNIFICANT
     Route: 042
     Dates: start: 201909
  12. SODIUM CHLORIDE. [Concomitant]
     Active Substance: SODIUM CHLORIDE
     Dosage: 50 MILLILITER
     Route: 042
     Dates: start: 201909
  13. CEFIXIME. [Concomitant]
     Active Substance: CEFIXIME
     Indication: PROPHYLAXIS
     Dosage: 400 MG OD BETWEEN DAYS ?2 AND +10 OF EACH COURSE
     Route: 048
     Dates: start: 201909

REACTIONS (2)
  - Off label use [Unknown]
  - Drug-induced liver injury [Recovered/Resolved]

NARRATIVE: CASE EVENT DATE: 2019
